FAERS Safety Report 4771660-0 (Version None)
Quarter: 2005Q3

REPORT INFORMATION
  Report Type: 
  Country: None (occurrence: None)
  Receive Date: 20050916
  Receipt Date: 20050907
  Transmission Date: 20060218
  Serious: Yes (Death)
  Sender: FDA-Public Use
  Company Number: SE-JNJFOC-20050902322

PATIENT
  Sex: Male

DRUGS (4)
  1. REOPRO [Suspect]
     Indication: CHEST PAIN
     Route: 042
  2. ENOXAPARIN SODIUM [Suspect]
     Indication: DRUG USE FOR UNKNOWN INDICATION
  3. PLAVIX [Suspect]
     Indication: DRUG USE FOR UNKNOWN INDICATION
     Route: 048
  4. NITROGLYCERIN [Concomitant]

REACTIONS (1)
  - CEREBRAL HAEMORRHAGE [None]
